FAERS Safety Report 8102898-2 (Version None)
Quarter: 2012Q1

REPORT INFORMATION
  Report Type: 
  Country: None (occurrence: None)
  Receive Date: 20120201
  Receipt Date: 20120125
  Transmission Date: 20120608
  Serious: Yes (Hospitalization, Other)
  Sender: FDA-Public Use
  Company Number: KR-BAYER-2012-003054

PATIENT
  Age: 61 Year
  Sex: Male
  Weight: 82 kg

DRUGS (6)
  1. SORAFENIB (RAF KINASE INHIBITOR) [Suspect]
     Indication: GASTRIC CANCER
     Dosage: UNK
     Dates: start: 20111114
  2. SORAFENIB (RAF KINASE INHIBITOR) [Suspect]
     Dosage: 400 MG, BID
     Dates: start: 20111226, end: 20120108
  3. CAPECITABINE [Suspect]
     Indication: GASTRIC CANCER
     Dosage: UNK
     Dates: start: 20111114
  4. CISPLATIN [Suspect]
     Indication: GASTRIC CANCER
     Dosage: UNK
     Dates: start: 20111114
  5. CAPECITABINE [Suspect]
     Dosage: 1500 MG, BID
     Dates: start: 20111226, end: 20120108
  6. CISPLATIN [Suspect]
     Dosage: 115 MG, QD
     Dates: start: 20111226, end: 20120108

REACTIONS (6)
  - PULMONARY EMBOLISM [None]
  - FEBRILE NEUTROPENIA [None]
  - OEDEMA PERIPHERAL [None]
  - BLOOD PRESSURE DECREASED [None]
  - PYREXIA [None]
  - DEEP VEIN THROMBOSIS [None]
